FAERS Safety Report 7606012-9 (Version None)
Quarter: 2011Q3

REPORT INFORMATION
  Report Type: 
  Country: None (occurrence: None)
  Receive Date: 20110713
  Receipt Date: 20110629
  Transmission Date: 20111222
  Serious: Yes (Hospitalization, Other)
  Sender: FDA-Public Use
  Company Number: PHHY2011DE58388

PATIENT
  Sex: Male
  Weight: 95 kg

DRUGS (13)
  1. BETA BLOCKING AGENTS [Concomitant]
  2. ACE INHIBITOR NOS [Concomitant]
  3. CALCIUM CHANNEL BLOCKERS [Concomitant]
  4. DIURETICS [Concomitant]
  5. INSULIN [Concomitant]
     Indication: DIABETES MELLITUS
  6. STATINS [Suspect]
  7. NSAID'S [Concomitant]
  8. ALISKIREN [Suspect]
     Indication: HYPERTENSION
     Dosage: UNK
     Route: 048
     Dates: start: 20090319, end: 20100510
  9. ORAL ANTIDIABETICS [Concomitant]
     Indication: DIABETES MELLITUS
  10. VASODILATORS USED IN CARDIAC DISEASES [Concomitant]
     Dosage: UNK
     Dates: start: 20091020, end: 20100510
  11. VALSARTAN [Suspect]
     Dosage: UNK
     Route: 048
     Dates: start: 20090727, end: 20100510
  12. ANTIADRENERGIC AGENTS, CENTRALLY ACTING [Concomitant]
     Dosage: UNK
     Dates: end: 20091020
  13. THIENOPYRIDINES [Concomitant]

REACTIONS (3)
  - BLOOD CREATININE INCREASED [None]
  - MYOCARDIAL INFARCTION [None]
  - HYPERTENSION [None]
